FAERS Safety Report 10770850 (Version 1)
Quarter: 2015Q1

REPORT INFORMATION
  Report Type: Spontaneous
  Country: US (occurrence: None)
  Receive Date: 20150204
  Receipt Date: 20150204
  Transmission Date: 20150721
  Serious: Yes (Death)
  Sender: FDA-Public Use
  Company Number: 2728949

PATIENT
  Age: 18 Year
  Sex: Female

DRUGS (4)
  1. LORAZEPAM. [Suspect]
     Active Substance: LORAZEPAM
  2. ALPRAZOLAM. [Suspect]
     Active Substance: ALPRAZOLAM
  3. MARIJUANA [Suspect]
     Active Substance: CANNABIS SATIVA SUBSP. INDICA TOP
  4. OXYMORPHONE [Concomitant]
     Active Substance: OXYMORPHONE

REACTIONS (4)
  - Cardiac arrest [None]
  - Respiratory arrest [None]
  - Drug abuse [None]
  - Poisoning [None]

NARRATIVE: CASE EVENT DATE: 2013
